FAERS Safety Report 4562327-2 (Version None)
Quarter: 2005Q1

REPORT INFORMATION
  Report Type: 
  Country: None (occurrence: None)
  Receive Date: 20050121
  Receipt Date: 20050111
  Transmission Date: 20050727
  Serious: Yes (Other)
  Sender: FDA-Public Use
  Company Number: 2004235577US

PATIENT
  Age: 33 Year
  Sex: Female
  Weight: 51.2565 kg

DRUGS (1)
  1. DEPO-PROVERA [Suspect]
     Indication: CONTRACEPTION
     Dosage: 150 MG (150 MG, FIRST INJECTION) , INTRAMUSCULAR
     Route: 030
     Dates: start: 20040721, end: 20040721

REACTIONS (9)
  - ANXIETY [None]
  - BLOOD PRESSURE FLUCTUATION [None]
  - HEADACHE [None]
  - HYPERTENSION [None]
  - IMPAIRED WORK ABILITY [None]
  - MENORRHAGIA [None]
  - MENSTRUATION IRREGULAR [None]
  - METRORRHAGIA [None]
  - TREATMENT NONCOMPLIANCE [None]
